FAERS Safety Report 4576099-9 (Version None)
Quarter: 2005Q1

REPORT INFORMATION
  Report Type: 
  Country: None (occurrence: None)
  Receive Date: 20050201
  Receipt Date: 20050201
  Transmission Date: 20050727
  Serious: No
  Sender: FDA-Public Use
  Company Number: None

PATIENT
  Age: 60 Year
  Sex: Female
  Weight: 70.3075 kg

DRUGS (1)
  1. DEPO-MEDROL [Suspect]
     Indication: MUSCULOSKELETAL PAIN
     Dates: start: 20050129, end: 20050129

REACTIONS (4)
  - DIZZINESS [None]
  - HEART RATE INCREASED [None]
  - IMPAIRED DRIVING ABILITY [None]
  - MIGRAINE [None]
